FAERS Safety Report 15813820 (Version 2)
Quarter: 2019Q1

REPORT INFORMATION
  Report Type: Report from Study
  Country: US (occurrence: US)
  Receive Date: 20190111
  Receipt Date: 20190205
  Transmission Date: 20190417
  Serious: Yes (Death, Hospitalization)
  Sender: FDA-Public Use
  Company Number: US-TAIHO ONCOLOGY  INC-EU-2019-00079

PATIENT
  Age: 61 Year
  Sex: Male
  Weight: 84.44 kg

DRUGS (6)
  1. LEXAPRO [Concomitant]
     Active Substance: ESCITALOPRAM OXALATE
     Dosage: NI
  2. NORVASC [Concomitant]
     Active Substance: AMLODIPINE BESYLATE
     Dosage: NI
  3. DEXAMETHASONE. [Concomitant]
     Active Substance: DEXAMETHASONE
     Dosage: NI
  4. XANAX [Concomitant]
     Active Substance: ALPRAZOLAM
     Dosage: NI
  5. LONSURF [Suspect]
     Active Substance: TIPIRACIL HYDROCHLORIDE\TRIFLURIDINE
     Indication: COLON CANCER
     Dosage: ONE 15MG (15MG BID) AND TWO 20MG (40MG BID) TABLET?CURRENT CYCLE 1
     Route: 048
     Dates: start: 20181217, end: 201812
  6. ENALAPRIL [Concomitant]
     Active Substance: ENALAPRIL
     Dosage: NI

REACTIONS (5)
  - Therapy cessation [None]
  - Abdominal pain [Unknown]
  - Disease progression [Fatal]
  - Laboratory test abnormal [Not Recovered/Not Resolved]
  - Off label use [None]

NARRATIVE: CASE EVENT DATE: 20190102
